FAERS Safety Report 17414185 (Version 1)
Quarter: 2020Q1

REPORT INFORMATION
  Report Type: Spontaneous
  Country: DK (occurrence: DK)
  Receive Date: 20200213
  Receipt Date: 20200213
  Transmission Date: 20200409
  Serious: Yes (Hospitalization)
  Sender: FDA-Public Use
  Company Number: DK-NOVOPROD-710764

PATIENT
  Age: 59 Year
  Sex: Male

DRUGS (10)
  1. OZEMPIC [Suspect]
     Active Substance: SEMAGLUTIDE
     Indication: TYPE 2 DIABETES MELLITUS
     Dosage: UNK (0,25 MG OG 0,50 MG DOSIS: 0,25 MG UGENTLIGT I 1 MDR, DEREFTER 0,5 MG UGENTLIGT   )
     Route: 058
     Dates: start: 20191113, end: 20200115
  2. NITROLINGUAL [Concomitant]
     Active Substance: NITROGLYCERIN
     Indication: ANGINA PECTORIS
     Dosage: 0.8 MG (0.4 MG/DOSIS DOSIS: H?JST FIRE GANGE DAGLIGT)
     Route: 060
     Dates: start: 20190222
  3. TRIATEC COMP [Concomitant]
     Active Substance: HYDROCHLOROTHIAZIDE\RAMIPRIL
     Indication: HYPERTENSION
     Dosage: 10 MG QD
     Route: 048
     Dates: start: 20190222
  4. CENTYL MED KALIUMKLORID [Concomitant]
     Active Substance: BENDROFLUMETHIAZIDE\POTASSIUM CHLORIDE
     Indication: HYPERTENSION
     Dosage: 1 DF, QD
     Route: 048
     Dates: start: 20190306
  5. ATORVASTATIN ACTAVIS [ATORVASTATIN CALCIUM] [Concomitant]
     Indication: HYPERCHOLESTEROLAEMIA
     Dosage: 40 MG, QD
     Route: 048
     Dates: start: 20171204
  6. PANODIL [Concomitant]
     Active Substance: ACETAMINOPHEN
     Indication: PAIN
     Dosage: 1000 MG (500 MG H?JST 4 GANGE DAGLIGT)
     Route: 048
     Dates: start: 20180223
  7. METFORMIN ACTAVIS [Concomitant]
     Active Substance: METFORMIN HYDROCHLORIDE
     Indication: TYPE 2 DIABETES MELLITUS
     Dosage: 2000 MG QD, 500 MG (VARIERENDE DOSIS FREM TIL 03OKT2019)
     Route: 048
     Dates: start: 20180703
  8. KININ [QUININE HYDROCHLORIDE] [Concomitant]
     Indication: MUSCLE SPASMS
     Dosage: 100 MG, QD
     Route: 048
     Dates: start: 20190508
  9. METOPROLOL TARTRATE. [Concomitant]
     Active Substance: METOPROLOL TARTRATE
     Indication: HYPERTENSION
     Dosage: 100 MG QD (25 + 50 MG DOSIS FREM TIL 23FEB2019 25 MG DAGLIGT)
     Route: 048
     Dates: start: 20160829
  10. VIAGRA [Concomitant]
     Active Substance: SILDENAFIL CITRATE
     Indication: ERECTILE DYSFUNCTION
     Dosage: 100 MG (DOSIS EFTER BEHOV)
     Route: 048
     Dates: start: 20190508

REACTIONS (2)
  - Abdominal discomfort [Recovered/Resolved]
  - Ileus [Recovered/Resolved]

NARRATIVE: CASE EVENT DATE: 201911
